FAERS Safety Report 25513048 (Version 2)
Quarter: 2025Q3

REPORT INFORMATION
  Report Type: Report from Study
  Country: CN (occurrence: CN)
  Receive Date: 20250703
  Receipt Date: 20250704
  Transmission Date: 20251020
  Serious: Yes (Hospitalization, Other)
  Sender: RIGEL PHARMACEUTICALS
  Company Number: CN-RIGEL PHARMACEUTICALS, INC-20250600137

PATIENT
  Age: 61 Year
  Sex: Female

DRUGS (13)
  1. PRALSETINIB [Suspect]
     Active Substance: PRALSETINIB
     Indication: Non-small cell lung cancer
     Dosage: 400 MILLIGRAM, QD
     Route: 048
     Dates: start: 20240315
  2. PRALSETINIB [Suspect]
     Active Substance: PRALSETINIB
     Dosage: 300 MILLIGRAM, QD
     Route: 048
     Dates: end: 202406
  3. PRALSETINIB [Suspect]
     Active Substance: PRALSETINIB
     Dosage: 200 MILLIGRAM, QD
     Route: 048
     Dates: start: 202406, end: 20240909
  4. PRALSETINIB [Suspect]
     Active Substance: PRALSETINIB
     Dosage: 200 MILLIGRAM, QD
     Route: 048
  5. PRALSETINIB [Suspect]
     Active Substance: PRALSETINIB
     Dosage: 100 MG, QD
     Route: 048
     Dates: start: 20250317
  6. PRALSETINIB [Suspect]
     Active Substance: PRALSETINIB
     Route: 048
     Dates: start: 202504, end: 202506
  7. PRALSETINIB [Suspect]
     Active Substance: PRALSETINIB
     Dosage: 100 MG, QD
     Route: 048
     Dates: start: 202506
  8. METOPROLOL [Concomitant]
     Active Substance: METOPROLOL
     Indication: Hypertension
     Route: 048
  9. ADALAT [Concomitant]
     Active Substance: NIFEDIPINE
     Indication: Hypertension
     Route: 048
  10. BENIDIPINE HYDROCHLORIDE [Concomitant]
     Active Substance: BENIDIPINE HYDROCHLORIDE
     Indication: Hypertension
     Route: 048
  11. EUTHYROX [Concomitant]
     Active Substance: LEVOTHYROXINE SODIUM
     Indication: Thyroidectomy
     Route: 048
  12. CALCIUM [Concomitant]
     Active Substance: CALCIUM
     Indication: Thyroidectomy
     Route: 048
  13. CALCITRIOL [Concomitant]
     Active Substance: CALCITRIOL
     Indication: Thyroidectomy
     Route: 048

REACTIONS (6)
  - Diarrhoea [Recovering/Resolving]
  - Pyrexia [Recovered/Resolved]
  - Intestinal obstruction [Unknown]
  - Red blood cell count decreased [Unknown]
  - Appendix disorder [Unknown]
  - Anaemia [Recovering/Resolving]

NARRATIVE: CASE EVENT DATE: 20240315
